FAERS Safety Report 14521705 (Version 2)
Quarter: 2018Q1

REPORT INFORMATION
  Report Type: Other
  Country: AU (occurrence: AU)
  Receive Date: 20180212
  Receipt Date: 20180227
  Transmission Date: 20180509
  Serious: Yes (Other)
  Sender: FDA-Public Use
  Company Number: AU-ALSI-201800106

PATIENT
  Age: 69 Year
  Sex: Male

DRUGS (1)
  1. 100% OXYGEN [Suspect]
     Active Substance: OXYGEN
     Indication: TRACHEOSTOMY
     Route: 050

REACTIONS (1)
  - Thermal burn [Unknown]
